FAERS Safety Report 9814427 (Version 3)
Quarter: 2014Q2

REPORT INFORMATION
  Report Type: Spontaneous
  Country: US (occurrence: US)
  Receive Date: 20140113
  Receipt Date: 20140402
  Transmission Date: 20141212
  Serious: Yes (Death, Hospitalization)
  Sender: FDA-Public Use
  Company Number: US-CELGENEUS-163-POMAL-14011605

PATIENT
  Age: 74 Year
  Sex: Male

DRUGS (2)
  1. POMALYST [Suspect]
     Indication: PLASMA CELL MYELOMA
     Dosage: 4 MILLIGRAM
     Route: 065
     Dates: start: 201305
  2. ELAVIL [Concomitant]
     Indication: SLEEP DISORDER
     Dosage: 1 TABLET
     Route: 048
     Dates: start: 20130613

REACTIONS (2)
  - Chronic obstructive pulmonary disease [Fatal]
  - Pneumonia [Unknown]
